FAERS Safety Report 5480342-1 (Version None)
Quarter: 2007Q3

REPORT INFORMATION
  Report Type: 
  Country: None (occurrence: None)
  Receive Date: 20070914
  Receipt Date: 20061115
  Transmission Date: 20080115
  Serious: Yes (Death)
  Sender: FDA-Public Use
  Company Number: 06P-163-0350481-00

PATIENT
  Age: 71 Year
  Sex: Female

DRUGS (1)
  1. SYNTHROID [Suspect]
     Dosage: 150 MCG, 1 IN 1 D, PER ORAL
     Route: 048
     Dates: start: 20021201, end: 20060101

REACTIONS (1)
  - DEATH [None]
